FAERS Safety Report 7820051-4 (Version None)
Quarter: 2011Q4

REPORT INFORMATION
  Report Type: 
  Country: None (occurrence: None)
  Receive Date: 20111018
  Receipt Date: 20111007
  Transmission Date: 20120403
  Serious: Yes (Hospitalization)
  Sender: FDA-Public Use
  Company Number: FR-SANOFI-AVENTIS-2011SA065649

PATIENT
  Age: 84 Year
  Sex: Male

DRUGS (12)
  1. DIGOXIN [Concomitant]
     Route: 065
  2. TRAMADOL HCL [Suspect]
     Route: 048
  3. RABEPRAZOLE SODIUM [Concomitant]
     Route: 065
  4. POLYETHYLENE GLYCOL [Concomitant]
     Route: 065
  5. ZOPICLONE [Suspect]
     Route: 048
  6. BISOPROLOL FUMARATE [Suspect]
     Route: 048
  7. PREVISCAN [Suspect]
     Dosage: ALTERNATIVELY 1 TABLET FIRST DAY AND 3/4 OF TABLET THE OTHER DAY
     Route: 048
     Dates: start: 20080101
  8. POTASSIUM CHLORIDE [Concomitant]
     Route: 065
  9. ACETAMINOPHEN [Concomitant]
     Route: 065
  10. RAMIPRIL [Suspect]
     Route: 048
  11. LASIX [Suspect]
     Route: 048
  12. ALLOPURINOL [Concomitant]
     Route: 065

REACTIONS (1)
  - FALL [None]
